FAERS Safety Report 15412595 (Version 2)
Quarter: 2018Q4

REPORT INFORMATION
  Report Type: Spontaneous
  Country: JP (occurrence: JP)
  Receive Date: 20180921
  Receipt Date: 20181001
  Transmission Date: 20190204
  Serious: Yes (Other)
  Sender: FDA-Public Use
  Company Number: JP-PFIZER INC-2018377194

PATIENT
  Age: 65 Year
  Sex: Female

DRUGS (10)
  1. VINORELBINE [Suspect]
     Active Substance: VINORELBINE\VINORELBINE TARTRATE
     Indication: INVASIVE DUCTAL BREAST CARCINOMA
     Dosage: UNK, CYCLIC
  2. VINORELBINE [Suspect]
     Active Substance: VINORELBINE\VINORELBINE TARTRATE
     Indication: METASTASES TO BONE
  3. PACLITAXEL. [Suspect]
     Active Substance: PACLITAXEL
     Indication: INVASIVE DUCTAL BREAST CARCINOMA
     Dosage: UNK, WEEKLY
  4. ERIBULIN [Suspect]
     Active Substance: ERIBULIN
     Indication: METASTASES TO BONE
     Dosage: UNK, CYCLIC
  5. ERIBULIN [Suspect]
     Active Substance: ERIBULIN
     Indication: INVASIVE DUCTAL BREAST CARCINOMA
  6. GEMCITABINE HYDROCHLORIDE. [Suspect]
     Active Substance: GEMCITABINE HYDROCHLORIDE
     Indication: INVASIVE DUCTAL BREAST CARCINOMA
     Dosage: UNK, CYCLIC
  7. GEMCITABINE HYDROCHLORIDE. [Suspect]
     Active Substance: GEMCITABINE HYDROCHLORIDE
     Indication: METASTASES TO LIVER
  8. ERIBULIN [Suspect]
     Active Substance: ERIBULIN
     Indication: METASTASES TO LIVER
  9. GEMCITABINE HYDROCHLORIDE. [Suspect]
     Active Substance: GEMCITABINE HYDROCHLORIDE
     Indication: METASTASES TO BONE
  10. VINORELBINE [Suspect]
     Active Substance: VINORELBINE\VINORELBINE TARTRATE
     Indication: METASTASES TO LIVER

REACTIONS (1)
  - Pseudocirrhosis [Unknown]
